FAERS Safety Report 9325973 (Version 1)
Quarter: 2013Q2

REPORT INFORMATION
  Report Type: Spontaneous
  Country: GB (occurrence: GB)
  Receive Date: 20130604
  Receipt Date: 20130604
  Transmission Date: 20140414
  Serious: Yes (Hospitalization)
  Sender: FDA-Public Use
  Company Number: GB-ROCHE-GNE308510

PATIENT
  Age: 15 Year
  Sex: Female

DRUGS (6)
  1. XOLAIR [Suspect]
     Indication: ASTHMA
     Route: 058
     Dates: start: 20100309
  2. XOLAIR [Suspect]
     Route: 058
     Dates: start: 20100309
  3. XOLAIR [Suspect]
     Route: 058
     Dates: start: 20120904
  4. XOLAIR [Suspect]
     Route: 058
     Dates: start: 20130219
  5. CLARITIN [Concomitant]
  6. CONCERTA [Concomitant]

REACTIONS (8)
  - Asthma [Recovered/Resolved]
  - Nasopharyngitis [Recovered/Resolved]
  - Dyspnoea [Unknown]
  - Urticaria [Recovered/Resolved]
  - Rhinitis allergic [Recovered/Resolved]
  - Multiple allergies [Recovered/Resolved]
  - Attention deficit/hyperactivity disorder [Recovered/Resolved]
  - Atelectasis [Recovered/Resolved]
